FAERS Safety Report 11110803 (Version 1)
Quarter: 2015Q2

REPORT INFORMATION
  Report Type: Spontaneous
  Country: HR (occurrence: HR)
  Receive Date: 20150513
  Receipt Date: 20150513
  Transmission Date: 20150821
  Serious: Yes (Other)
  Sender: FDA-Public Use
  Company Number: HR-TEVA-561912ISR

PATIENT
  Age: 30 Year
  Sex: Female

DRUGS (1)
  1. IBUPROFEN PLIVA [Suspect]
     Active Substance: IBUPROFEN
     Dosage: 400 MILLIGRAM DAILY;
     Route: 048
     Dates: start: 20150303, end: 20150303

REACTIONS (2)
  - Choking [Recovered/Resolved]
  - Pruritus [Recovered/Resolved]

NARRATIVE: CASE EVENT DATE: 20150303
